FAERS Safety Report 6470761-9 (Version None)
Quarter: 2009Q4

REPORT INFORMATION
  Report Type: 
  Country: None (occurrence: None)
  Receive Date: 20091203
  Receipt Date: 20091127
  Transmission Date: 20100525
  Serious: Yes (Hospitalization)
  Sender: FDA-Public Use
  Company Number: B0604028A

PATIENT
  Age: 68 Year
  Sex: Female

DRUGS (1)
  1. TYKERB [Suspect]
     Indication: BREAST CANCER
     Dosage: 1250MG TWICE PER DAY
     Route: 048
     Dates: start: 20091109, end: 20091110

REACTIONS (2)
  - DIARRHOEA [None]
  - OVERDOSE [None]
